FAERS Safety Report 13500152 (Version 1)
Quarter: 2017Q2

REPORT INFORMATION
  Report Type: Spontaneous
  Country: US (occurrence: US)
  Receive Date: 20170501
  Receipt Date: 20170501
  Transmission Date: 20170830
  Serious: Yes (Disabling)
  Sender: FDA-Public Use
  Company Number: None

PATIENT
  Age: 69 Year
  Sex: Female
  Weight: 81 kg

DRUGS (10)
  1. PRISTIQ EXTENDED-RELEASE [Suspect]
     Active Substance: DESVENLAFAXINE SUCCINATE
     Indication: DEPRESSION
     Route: 048
     Dates: start: 20151214, end: 20151221
  2. INSULIN [Concomitant]
     Active Substance: INSULIN NOS
  3. MUCINEX [Concomitant]
     Active Substance: GUAIFENESIN
  4. VITAMIN B12 [Concomitant]
     Active Substance: CYANOCOBALAMIN
  5. ALLERGY SHOTS [Concomitant]
     Active Substance: UNSPECIFIED INGREDIENT
  6. COZAAR [Concomitant]
     Active Substance: LOSARTAN POTASSIUM
  7. COMPLEX B VITS [Concomitant]
  8. DEXILANT [Concomitant]
     Active Substance: DEXLANSOPRAZOLE
  9. PRISTIQ EXTENDED-RELEASE [Suspect]
     Active Substance: DESVENLAFAXINE SUCCINATE
     Indication: ANGER
     Route: 048
     Dates: start: 20151214, end: 20151221
  10. ADVIL [Concomitant]
     Active Substance: IBUPROFEN

REACTIONS (10)
  - Disorientation [None]
  - Movement disorder [None]
  - Nervous system disorder [None]
  - Impaired work ability [None]
  - Glaucoma [None]
  - Confusional state [None]
  - Drug monitoring procedure not performed [None]
  - Pain in extremity [None]
  - Fatigue [None]
  - Loss of employment [None]

NARRATIVE: CASE EVENT DATE: 20151220
